FAERS Safety Report 6359993-8 (Version None)
Quarter: 2009Q3

REPORT INFORMATION
  Report Type: 
  Country: None (occurrence: None)
  Receive Date: 20090917
  Receipt Date: 20090907
  Transmission Date: 20100115
  Serious: Yes (Life-Threatening)
  Sender: FDA-Public Use
  Company Number: JP-SANOFI-SYNTHELABO-A01200909361

PATIENT
  Sex: Male
  Weight: 81 kg

DRUGS (12)
  1. ACINON [Concomitant]
     Route: 048
  2. CELECOX [Concomitant]
     Indication: RHEUMATOID ARTHRITIS
     Route: 048
  3. METFORMIN HCL [Concomitant]
     Indication: DIABETES MELLITUS
     Route: 048
  4. EUGLUCON [Concomitant]
     Indication: DIABETES MELLITUS
     Route: 048
  5. MIKELAN LA [Concomitant]
     Indication: HYPERTENSION
     Dosage: 15 MG
     Route: 048
  6. DECADRON [Concomitant]
     Indication: PREMEDICATION
     Dosage: 8 MG
     Route: 042
     Dates: start: 20090210, end: 20090707
  7. GASTER [Concomitant]
     Indication: PREMEDICATION
     Dosage: 20 MG
     Route: 042
     Dates: start: 20090210, end: 20090707
  8. FLUOROURACIL [Concomitant]
     Indication: COLON CANCER
     Dosage: 760MG/BODY (400MG/M2) BOLUS THEN 4570MG/BODY/D1-2 (2405.3MG/M2/D1-2) AS CONTINUOUS INFUSION
     Route: 042
     Dates: start: 20090210, end: 20090210
  9. FLUOROURACIL [Concomitant]
     Dosage: 780MG/BODY (410.5MG/M2) AND FLUOROURACIL AS CONTINUOUS INFUSION 4710MG/BODY/D1-2 (2478.9MG/M2/D1-2)
     Route: 042
     Dates: start: 20090622, end: 20090622
  10. LEUCOVORIN CALCIUM [Suspect]
     Dosage: 390 MG
     Route: 041
     Dates: start: 20090707, end: 20090707
  11. ELPLAT [Suspect]
     Indication: COLON CANCER
     Dosage: 160 MG
     Route: 041
     Dates: start: 20090707, end: 20090707
  12. PERSANTINE [Concomitant]
     Indication: HYPERTENSION
     Route: 048

REACTIONS (2)
  - ACUTE RESPIRATORY DISTRESS SYNDROME [None]
  - ANAPHYLACTIC SHOCK [None]
